FAERS Safety Report 7109233-7 (Version None)
Quarter: 2010Q4

REPORT INFORMATION
  Report Type: 
  Country: None (occurrence: None)
  Receive Date: 20101117
  Receipt Date: 20101103
  Transmission Date: 20110411
  Serious: Yes (Hospitalization)
  Sender: FDA-Public Use
  Company Number: NL-GENENTECH-309660

PATIENT
  Sex: Male
  Weight: 86.4 kg

DRUGS (8)
  1. RITUXIMAB [Suspect]
     Indication: DIFFUSE LARGE B-CELL LYMPHOMA
     Dosage: 800 MG, 2/WEEK/Q2W
     Route: 042
     Dates: start: 20100824, end: 20101005
  2. RITUXIMAB [Suspect]
     Dosage: 800 MG, Q2W
     Route: 042
     Dates: start: 20101019
  3. CYCLOPHOSPHAMIDE [Suspect]
     Indication: DIFFUSE LARGE B-CELL LYMPHOMA
     Dosage: 1600 MG, Q2W
     Route: 042
     Dates: start: 20100824
  4. DOXORUBICIN HCL [Suspect]
     Indication: DIFFUSE LARGE B-CELL LYMPHOMA
     Dosage: 110 MG, Q2W
     Route: 042
     Dates: start: 20100824
  5. VINCRISTINE [Suspect]
     Indication: DIFFUSE LARGE B-CELL LYMPHOMA
     Dosage: 2 MG, Q2W
     Route: 042
     Dates: start: 20100824
  6. PREDNISONE [Suspect]
     Indication: DIFFUSE LARGE B-CELL LYMPHOMA
     Dosage: 100 MG, UNK
     Route: 042
     Dates: start: 20100824
  7. COTRIM [Concomitant]
     Indication: PROPHYLAXIS
     Dosage: 480 UNK, QD
     Route: 048
     Dates: start: 20100824
  8. PEGFILGRASTIM [Concomitant]
     Indication: PROPHYLAXIS
     Dosage: 6 MG, UNK
     Route: 058
     Dates: start: 20100909

REACTIONS (1)
  - PERICARDITIS [None]
